FAERS Safety Report 4505944-8 (Version None)
Quarter: 2004Q4

REPORT INFORMATION
  Report Type: 
  Country: None (occurrence: None)
  Receive Date: 20041025
  Receipt Date: 20040630
  Transmission Date: 20050328
  Serious: Yes (Other)
  Sender: FDA-Public Use
  Company Number: US-JNJFOC-20040400436

PATIENT
  Age: 54 Year
  Sex: Female
  Weight: 129.7287 kg

DRUGS (5)
  1. REMICADE [Suspect]
     Indication: PSORIATIC ARTHROPATHY
     Dosage: 600MG, INTRAVENOUS
     Route: 042
     Dates: start: 20031218
  2. REMICADE [Suspect]
     Indication: PSORIATIC ARTHROPATHY
     Dosage: 600MG, INTRAVENOUS
     Route: 042
     Dates: start: 20040130
  3. REMICADE [Suspect]
     Indication: PSORIATIC ARTHROPATHY
     Dosage: 600MG, INTRAVENOUS
     Route: 042
     Dates: start: 20040312
  4. TYLENOL [Concomitant]
  5. BENADRYL [Concomitant]

REACTIONS (2)
  - ABDOMINAL MASS [None]
  - ANAPHYLACTIC SHOCK [None]
